FAERS Safety Report 9070834 (Version 1)
Quarter: 2013Q1

REPORT INFORMATION
  Report Type: Spontaneous
  Country: US (occurrence: US)
  Receive Date: 20130129
  Receipt Date: 20130129
  Transmission Date: 20140127
  Serious: No
  Sender: FDA-Public Use
  Company Number: US-ABBOTT-12P-163-0932479-00

PATIENT
  Sex: Male

DRUGS (3)
  1. HUMIRA 40 MG/ 0.8 ML PRE-FILLED SYRINGE [Suspect]
     Indication: PSORIASIS
     Dosage: 80 MG LOADING DOSE
     Route: 058
     Dates: start: 20120421, end: 20120421
  2. HUMIRA 40 MG/ 0.8 ML PRE-FILLED SYRINGE [Suspect]
     Dosage: 40MG DAY 8
     Dates: start: 20120429, end: 20120429
  3. HUMIRA 40 MG/ 0.8 ML PRE-FILLED SYRINGE [Suspect]

REACTIONS (3)
  - Epistaxis [Not Recovered/Not Resolved]
  - Papule [Not Recovered/Not Resolved]
  - Testicular pain [Not Recovered/Not Resolved]
